FAERS Safety Report 6145856-X (Version None)
Quarter: 2009Q2

REPORT INFORMATION
  Report Type: 
  Country: None (occurrence: None)
  Receive Date: 20090403
  Receipt Date: 20090326
  Transmission Date: 20091009
  Serious: Yes (Life-Threatening, Hospitalization)
  Sender: FDA-Public Use
  Company Number: 2009-193959-NL

PATIENT
  Age: 46 Year
  Sex: Male

DRUGS (7)
  1. MIRTAZAPINE [Suspect]
     Indication: DEPRESSION
     Dosage: 60 MG QD; ORAL
     Route: 048
     Dates: end: 20081120
  2. PHENYTOIN [Suspect]
     Indication: EPILEPSY
     Dosage: DF; ORAL
     Route: 048
     Dates: start: 19900101, end: 20081120
  3. GABAPENTIN [Suspect]
     Indication: EPILEPSY
     Dosage: 1600 MG QD; ORAL
     Route: 048
     Dates: start: 19900101, end: 20081120
  4. FLUOXETINE HCL [Suspect]
     Indication: DEPRESSION
     Dosage: 20 MG QD; ORAL
     Route: 048
     Dates: end: 20081120
  5. CLONAZEPAM [Suspect]
     Dosage: 2 MG QD; ORAL
     Route: 048
     Dates: start: 19900101, end: 20081120
  6. CLORAZEPATE DIPOTASSIUM [Suspect]
     Indication: DEPRESSED MOOD
     Dosage: 50 MG QD; ORAL
     Route: 048
     Dates: end: 20081120
  7. CLORAZEPATE DIPOTASSIUM [Suspect]
     Indication: PERSONALITY DISORDER
     Dosage: 50 MG QD; ORAL
     Route: 048
     Dates: end: 20081120

REACTIONS (4)
  - DEPRESSED LEVEL OF CONSCIOUSNESS [None]
  - DRUG SCREEN POSITIVE [None]
  - DRUG TOXICITY [None]
  - SUICIDE ATTEMPT [None]
